FAERS Safety Report 23734799 (Version 1)
Quarter: 2024Q2

REPORT INFORMATION
  Report Type: Spontaneous
  Country: US (occurrence: US)
  Receive Date: 20240412
  Receipt Date: 20240412
  Transmission Date: 20240716
  Serious: No
  Sender: FDA-Public Use
  Company Number: US-AJANTA-2024AJA00027

PATIENT

DRUGS (1)
  1. METFORMIN HYDROCHLORIDE [Suspect]
     Active Substance: METFORMIN HYDROCHLORIDE
     Indication: Product used for unknown indication

REACTIONS (3)
  - Pruritus [Recovered/Resolved]
  - Drug hypersensitivity [Recovered/Resolved]
  - Diarrhoea [Recovered/Resolved]
